FAERS Safety Report 8605581-X (Version None)
Quarter: 2012Q3

REPORT INFORMATION
  Report Type: 
  Country: None (occurrence: None)
  Receive Date: 20120820
  Receipt Date: 20120815
  Transmission Date: 20120928
  Serious: Yes (Death)
  Sender: FDA-Public Use
  Company Number: US-ASTRAZENECA-2012SE57564

PATIENT
  Age: 19 Year
  Sex: Male
  Weight: 145.2 kg

DRUGS (5)
  1. SEROQUEL [Suspect]
     Indication: AUTISM
     Dosage: 300 MG QAM, 200 MG IN THE AFTERNOON AND 300 MG QHS
     Route: 048
     Dates: start: 20110101, end: 20110830
  2. DEPAKOTE [Concomitant]
     Indication: AUTISM
     Route: 048
     Dates: start: 20110101, end: 20110830
  3. CLONIDINE [Concomitant]
     Indication: AUTISM
     Route: 048
     Dates: start: 19950101, end: 20110830
  4. THORAZINE [Concomitant]
     Indication: AUTISM
     Route: 048
     Dates: start: 20050101, end: 20110830
  5. LEXAPRO [Concomitant]
     Indication: AUTISM
     Route: 048
     Dates: start: 20110101, end: 20110830

REACTIONS (3)
  - OFF LABEL USE [None]
  - WEIGHT INCREASED [None]
  - NEUROLEPTIC MALIGNANT SYNDROME [None]
